FAERS Safety Report 7953552-9 (Version None)
Quarter: 2011Q4

REPORT INFORMATION
  Report Type: 
  Country: None (occurrence: None)
  Receive Date: 20111202
  Receipt Date: 20111128
  Transmission Date: 20120403
  Serious: Yes (Other)
  Sender: FDA-Public Use
  Company Number: NL-PFIZER INC-2011289219

PATIENT
  Age: 68 Year
  Sex: Female

DRUGS (2)
  1. XANAX [Suspect]
     Dosage: 1 MG, UNK
     Dates: start: 20080101
  2. XANAX [Suspect]
     Dosage: 0.5 MG, UNK
     Dates: start: 20100101

REACTIONS (5)
  - DRUG INEFFECTIVE [None]
  - PSYCHOTIC DISORDER [None]
  - PRURITUS [None]
  - SUICIDAL IDEATION [None]
  - ANXIETY [None]
